FAERS Safety Report 5532058-0 (Version None)
Quarter: 2007Q4

REPORT INFORMATION
  Report Type: 
  Country: None (occurrence: None)
  Receive Date: 20071203
  Receipt Date: 20071126
  Transmission Date: 20080405
  Serious: Yes (Hospitalization)
  Sender: FDA-Public Use
  Company Number: B0493649A

PATIENT
  Age: 41 Year
  Sex: Female
  Weight: 153 kg

DRUGS (2)
  1. TOPOTECAN [Suspect]
     Dosage: 3.5MG SEE DOSAGE TEXT
     Route: 042
     Dates: start: 20070912
  2. PACLITAXEL [Suspect]
     Dosage: 138MG SEE DOSAGE TEXT
     Route: 042
     Dates: start: 20070912

REACTIONS (2)
  - ENTEROCUTANEOUS FISTULA [None]
  - FAECAL INCONTINENCE [None]
